FAERS Safety Report 7587001-X (Version None)
Quarter: 2011Q3

REPORT INFORMATION
  Report Type: 
  Country: None (occurrence: None)
  Receive Date: 20110701
  Receipt Date: 20110622
  Transmission Date: 20111222
  Serious: Yes (Other)
  Sender: FDA-Public Use
  Company Number: PHHY2011US56211

PATIENT
  Sex: Female
  Weight: 53 kg

DRUGS (5)
  1. BACLOFEN [Concomitant]
     Indication: MUSCLE SPASTICITY
     Dosage: 10 MG, TID
     Dates: start: 20060101
  2. SIMVASTATIN [Concomitant]
     Indication: HYPERLIPIDAEMIA
     Dosage: 5 MG, DAILY
     Route: 048
     Dates: start: 20110411
  3. GILENYA [Suspect]
     Dosage: 0.5 MG/DAY
     Route: 048
  4. AVONEX [Concomitant]
  5. GILENYA [Suspect]
     Indication: MULTIPLE SCLEROSIS
     Dosage: 0.5 MG/DAY
     Route: 048
     Dates: start: 20110411, end: 20110512

REACTIONS (6)
  - VITREOUS HAEMORRHAGE [None]
  - VITREOUS FLOATERS [None]
  - AMBLYOPIA CONGENITAL [None]
  - VITREOUS DETACHMENT [None]
  - VISUAL IMPAIRMENT [None]
  - VISION BLURRED [None]
